FAERS Safety Report 21919371 (Version 1)
Quarter: 2023Q1

REPORT INFORMATION
  Report Type: Report from Study
  Country: CA (occurrence: CA)
  Receive Date: 20230127
  Receipt Date: 20230127
  Transmission Date: 20230418
  Serious: Yes (Hospitalization)
  Sender: FDA-Public Use
  Company Number: CA-ABBVIE-4283983

PATIENT
  Sex: Male

DRUGS (1)
  1. RINVOQ [Suspect]
     Active Substance: UPADACITINIB
     Indication: Rheumatoid arthritis
     Route: 048
     Dates: start: 20200628

REACTIONS (8)
  - Bacterial pyelonephritis [Unknown]
  - Joint swelling [Unknown]
  - Pain [Unknown]
  - Rash [Unknown]
  - Sinusitis bacterial [Unknown]
  - Bronchitis [Unknown]
  - Erythema [Unknown]
  - Musculoskeletal stiffness [Unknown]

NARRATIVE: CASE EVENT DATE: 20210101
